FAERS Safety Report 5483412-7 (Version None)
Quarter: 2007Q4

REPORT INFORMATION
  Report Type: 
  Country: None (occurrence: None)
  Receive Date: 20071009
  Receipt Date: 20070925
  Transmission Date: 20080405
  Serious: Yes (Congenital Anomaly)
  Sender: FDA-Public Use
  Company Number: 2007BI016301

PATIENT
  Sex: Male
  Weight: 2.3814 kg

DRUGS (2)
  1. AVONEX [Suspect]
     Indication: MATERNAL CONDITION AFFECTING FOETUS
     Dosage: 30 UG;QW;TRPL
     Route: 064
     Dates: start: 20010101, end: 20061007
  2. AVONEX [Suspect]
     Indication: MULTIPLE SCLEROSIS
     Dosage: 30 UG;QW;TRPL
     Route: 064
     Dates: start: 20010101, end: 20061007

REACTIONS (3)
  - ANKYLOGLOSSIA CONGENITAL [None]
  - DRUG EXPOSURE DURING PREGNANCY [None]
  - HYPOSPADIAS [None]
